FAERS Safety Report 15960941 (Version 1)
Quarter: 2019Q1

REPORT INFORMATION
  Report Type: Spontaneous
  Country: JP (occurrence: JP)
  Receive Date: 20190214
  Receipt Date: 20190214
  Transmission Date: 20190417
  Serious: Yes (Other)
  Sender: FDA-Public Use
  Company Number: JP-ROCHE-2263118

PATIENT
  Age: 64 Year
  Sex: Male

DRUGS (1)
  1. BEVACIZUMAB. [Suspect]
     Active Substance: BEVACIZUMAB
     Indication: LUNG ADENOCARCINOMA STAGE IV
     Route: 065

REACTIONS (8)
  - Nephrotic syndrome [Unknown]
  - Haematuria [Recovering/Resolving]
  - Proteinuria [Recovering/Resolving]
  - Haemoglobin decreased [Unknown]
  - Thrombotic microangiopathy [Unknown]
  - Platelet count decreased [Unknown]
  - Oedema peripheral [Unknown]
  - Hypertension [Unknown]
